FAERS Safety Report 8470550 (Version 2)
Quarter: 2012Q4

REPORT INFORMATION
  Report Type: 
  Country: US (occurrence: US)
  Receive Date: 20120321
  Receipt Date: 20121019
  Transmission Date: 20130627
  Serious: Yes (Other)
  Sender: FDA-Public Use
  Company Number: US-ROCHE-1022332

PATIENT
  Age: 35 None
  Sex: Female
  Weight: 54.48 kg

DRUGS (2)
  1. ACCUTANE [Suspect]
     Indication: ACNE
     Route: 065
     Dates: start: 1981, end: 198405
  2. ACCUTANE [Suspect]
     Route: 065
     Dates: start: 19840112

REACTIONS (5)
  - Colitis ulcerative [Unknown]
  - Colon cancer [Unknown]
  - Intestinal obstruction [Unknown]
  - Deep vein thrombosis [Unknown]
  - Lip dry [Unknown]
